FAERS Safety Report 5707970-X (Version None)
Quarter: 2008Q2

REPORT INFORMATION
  Report Type: 
  Country: None (occurrence: None)
  Receive Date: 20080417
  Receipt Date: 20080411
  Transmission Date: 20081010
  Serious: Yes (Death, Hospitalization)
  Sender: FDA-Public Use
  Company Number: PHBS2008IT04057

PATIENT
  Age: 76 Year
  Sex: Male

DRUGS (3)
  1. STEROIDS NOS [Concomitant]
     Indication: MYELODYSPLASTIC SYNDROME
  2. VORICONAZOLE [Concomitant]
     Indication: BRONCHOPULMONARY ASPERGILLOSIS
     Dates: start: 20070201
  3. CYCLOSPORINE [Suspect]
     Indication: MYELODYSPLASTIC SYNDROME

REACTIONS (12)
  - ACUTE MYELOID LEUKAEMIA [None]
  - DEBRIDEMENT [None]
  - ERYTHEMA [None]
  - EXTREMITY NECROSIS [None]
  - LEG AMPUTATION [None]
  - LESION EXCISION [None]
  - LIMB INJURY [None]
  - LOCALISED OEDEMA [None]
  - PAIN [None]
  - PYREXIA [None]
  - TOE AMPUTATION [None]
  - ZYGOMYCOSIS [None]
